FAERS Safety Report 10738247 (Version 1)
Quarter: 2015Q1

REPORT INFORMATION
  Report Type: Spontaneous
  Country: US (occurrence: None)
  Receive Date: 20150122
  Receipt Date: 20150122
  Transmission Date: 20150721
  Serious: Yes (Hospitalization, Disabling)
  Sender: FDA-Public Use
  Company Number: None

PATIENT
  Age: 83 Year
  Sex: Female
  Weight: 51.71 kg

DRUGS (5)
  1. MULTIPLE VITAMINS [Concomitant]
     Active Substance: VITAMINS
  2. TOPROL XL [Concomitant]
     Active Substance: METOPROLOL SUCCINATE
  3. TRAMADOL [Concomitant]
     Active Substance: TRAMADOL
  4. NITROSTAT [Concomitant]
     Active Substance: NITROGLYCERIN
  5. CRESTOR [Suspect]
     Active Substance: ROSUVASTATIN CALCIUM
     Indication: BLOOD CHOLESTEROL
     Dosage: 1 ONCE A WEEK 2X 1 WEEK APART BY MOUTH
     Route: 048
     Dates: start: 20140126, end: 20140203

REACTIONS (7)
  - Compression fracture [None]
  - Treatment failure [None]
  - Myalgia [None]
  - Paralysis [None]
  - Rhabdomyolysis [None]
  - Loss of consciousness [None]
  - Muscle spasms [None]

NARRATIVE: CASE EVENT DATE: 20140126
